FAERS Safety Report 4599197-2 (Version None)
Quarter: 2005Q2

REPORT INFORMATION
  Report Type: 
  Country: None (occurrence: None)
  Receive Date: 20050207
  Receipt Date: 20040920
  Transmission Date: 20051028
  Serious: Yes (Other)
  Sender: FDA-Public Use
  Company Number: PROG00204003427

PATIENT
  Age: 32 Year
  Sex: Female

DRUGS (4)
  1. PROMETRIUM [Suspect]
     Indication: HORMONE REPLACEMENT THERAPY
     Dosage: DAILY, ORAL
     Route: 048
     Dates: start: 20001201, end: 20001215
  2. PREMPHASE (PREMPHASE) [Suspect]
     Indication: HORMONE REPLACEMENT THERAPY
     Dosage: DAILY; ORAL
     Route: 048
     Dates: start: 20010201, end: 20010409
  3. MEDROXYPROGESTERONE [Suspect]
     Indication: HORMONE REPLACEMENT THERAPY
     Dosage: DAILY; ORAL
     Route: 048
     Dates: start: 20010409, end: 20020726
  4. PREMARIN [Suspect]
     Indication: HORMONE REPLACEMENT THERAPY
     Dosage: DAILY; ORAL
     Route: 048
     Dates: start: 20010425, end: 20020807

REACTIONS (1)
  - BREAST CANCER [None]
